FAERS Safety Report 23793037 (Version 2)
Quarter: 2025Q1

REPORT INFORMATION
  Report Type: Spontaneous
  Country: CA (occurrence: CA)
  Receive Date: 20240429
  Receipt Date: 20250123
  Transmission Date: 20250409
  Serious: Yes (Hospitalization, Congenital Anomaly, Other)
  Sender: SANDOZ
  Company Number: CA-002147023-NVSC2023CA052718

PATIENT
  Age: 1 Day
  Weight: 2 kg

DRUGS (36)
  1. BENZTROPINE MESYLATE [Suspect]
     Active Substance: BENZTROPINE MESYLATE
     Dosage: 1.5 MG, QD
     Route: 064
  2. BENZTROPINE MESYLATE [Suspect]
     Active Substance: BENZTROPINE MESYLATE
     Dosage: 1.5 MG, QD
     Route: 064
  3. BENZTROPINE MESYLATE [Suspect]
     Active Substance: BENZTROPINE MESYLATE
     Indication: Seizure
     Route: 064
  4. BENZTROPINE MESYLATE [Suspect]
     Active Substance: BENZTROPINE MESYLATE
     Route: 064
  5. BENZTROPINE MESYLATE [Suspect]
     Active Substance: BENZTROPINE MESYLATE
     Indication: Foetal exposure during pregnancy
     Route: 064
  6. BENZTROPINE MESYLATE [Suspect]
     Active Substance: BENZTROPINE MESYLATE
     Route: 064
  7. ESCITALOPRAM OXALATE [Suspect]
     Active Substance: ESCITALOPRAM OXALATE
     Dosage: 20 MG, QD
     Route: 064
  8. ESCITALOPRAM OXALATE [Suspect]
     Active Substance: ESCITALOPRAM OXALATE
     Dosage: 20 MG, QD
     Route: 064
  9. ESCITALOPRAM OXALATE [Suspect]
     Active Substance: ESCITALOPRAM OXALATE
     Dosage: 20 MG, QD
     Route: 064
  10. ESCITALOPRAM OXALATE [Suspect]
     Active Substance: ESCITALOPRAM OXALATE
     Route: 064
  11. ESCITALOPRAM OXALATE [Suspect]
     Active Substance: ESCITALOPRAM OXALATE
     Route: 064
  12. ESCITALOPRAM OXALATE [Suspect]
     Active Substance: ESCITALOPRAM OXALATE
     Indication: Foetal exposure during pregnancy
     Route: 064
  13. ESCITALOPRAM OXALATE [Suspect]
     Active Substance: ESCITALOPRAM OXALATE
     Route: 064
  14. ESCITALOPRAM OXALATE [Suspect]
     Active Substance: ESCITALOPRAM OXALATE
     Route: 064
  15. GABAPENTIN [Suspect]
     Active Substance: GABAPENTIN
     Dosage: 1800 MG, QD
     Route: 064
  16. GABAPENTIN [Suspect]
     Active Substance: GABAPENTIN
     Dosage: 1800 MG, QD
     Route: 064
  17. GABAPENTIN [Suspect]
     Active Substance: GABAPENTIN
     Route: 064
  18. GABAPENTIN [Suspect]
     Active Substance: GABAPENTIN
     Indication: Foetal exposure during pregnancy
     Route: 064
  19. GABAPENTIN [Suspect]
     Active Substance: GABAPENTIN
     Route: 064
  20. METHADONE [Suspect]
     Active Substance: METHADONE HYDROCHLORIDE
     Dosage: 70 MG, QD
     Route: 064
  21. METHADONE [Suspect]
     Active Substance: METHADONE HYDROCHLORIDE
     Indication: Drug abuser
     Route: 064
  22. METHADONE [Suspect]
     Active Substance: METHADONE HYDROCHLORIDE
     Route: 064
  23. METHADONE [Suspect]
     Active Substance: METHADONE HYDROCHLORIDE
     Indication: Foetal exposure during pregnancy
     Route: 064
  24. METHADONE [Suspect]
     Active Substance: METHADONE HYDROCHLORIDE
     Route: 064
  25. NORTRIPTYLINE [Suspect]
     Active Substance: NORTRIPTYLINE
     Dosage: 20 MG, QD
     Route: 064
  26. NORTRIPTYLINE [Suspect]
     Active Substance: NORTRIPTYLINE
     Dosage: 20 MG, QD
     Route: 064
  27. NORTRIPTYLINE [Suspect]
     Active Substance: NORTRIPTYLINE
     Route: 064
  28. NORTRIPTYLINE [Suspect]
     Active Substance: NORTRIPTYLINE
     Indication: Foetal exposure during pregnancy
     Route: 064
  29. NORTRIPTYLINE [Suspect]
     Active Substance: NORTRIPTYLINE
     Route: 064
  30. QUETIAPINE FUMARATE [Suspect]
     Active Substance: QUETIAPINE FUMARATE
     Dosage: 300 MG, Q12H
     Route: 064
  31. QUETIAPINE FUMARATE [Suspect]
     Active Substance: QUETIAPINE FUMARATE
     Indication: Foetal exposure during pregnancy
     Route: 064
  32. QUETIAPINE FUMARATE [Suspect]
     Active Substance: QUETIAPINE FUMARATE
     Route: 064
  33. RABEPRAZOLE [Suspect]
     Active Substance: RABEPRAZOLE
     Indication: Foetal exposure during pregnancy
     Route: 064
  34. RABEPRAZOLE [Suspect]
     Active Substance: RABEPRAZOLE
     Route: 064
  35. ZOPICLONE [Suspect]
     Active Substance: ZOPICLONE
     Indication: Foetal exposure during pregnancy
     Route: 064
  36. ZOPICLONE [Suspect]
     Active Substance: ZOPICLONE
     Route: 064

REACTIONS (8)
  - Muscle tone disorder [Recovered/Resolved]
  - Drug withdrawal syndrome neonatal [Recovered/Resolved]
  - Premature baby [Recovered/Resolved]
  - Trismus [Recovered/Resolved]
  - Crying [Recovered/Resolved]
  - Sleep disorder [Recovered/Resolved]
  - Tremor [Recovered/Resolved]
  - Foetal exposure during pregnancy [Unknown]
